FAERS Safety Report 17044946 (Version 1)
Quarter: 2019Q4

REPORT INFORMATION
  Report Type: Spontaneous
  Country: US (occurrence: US)
  Receive Date: 20191118
  Receipt Date: 20191118
  Transmission Date: 20200122
  Serious: No
  Sender: FDA-Public Use
  Company Number: US-SA-2019SA311457

PATIENT
  Sex: Female

DRUGS (14)
  1. MULTIVITAMIN + MINERAL [Concomitant]
     Active Substance: MINERALS\VITAMINS
  2. VITAMIN C ACID [Concomitant]
     Active Substance: ASCORBIC ACID
  3. AZELASTINE. [Concomitant]
     Active Substance: AZELASTINE HYDROCHLORIDE
  4. NUTRAFOL [Concomitant]
     Indication: HAIR DISORDER
  5. LASIX [Concomitant]
     Active Substance: FUROSEMIDE
     Indication: SWELLING
  6. FISH OIL [Concomitant]
     Active Substance: FISH OIL
  7. PRALUENT [Suspect]
     Active Substance: ALIROCUMAB
     Indication: LOW DENSITY LIPOPROTEIN DECREASED
     Dosage: UNK UNK, QOW
     Dates: start: 2018
  8. GLUCOSAMINE [Concomitant]
     Active Substance: GLUCOSAMINE
     Indication: ARTHRALGIA
  9. NASAL SPRAY II [Concomitant]
     Indication: HYPERSENSITIVITY
  10. FAMOTIDINE. [Concomitant]
     Active Substance: FAMOTIDINE
  11. LEVOTHYROXIN [Concomitant]
     Active Substance: LEVOTHYROXINE
  12. OLMESARTAN [Concomitant]
     Active Substance: OLMESARTAN
  13. XYZAL [Concomitant]
     Active Substance: LEVOCETIRIZINE DIHYDROCHLORIDE
     Indication: PRURITUS
  14. YUVAFEM [Concomitant]
     Active Substance: ESTRADIOL HEMIHYDRATE

REACTIONS (4)
  - Peripheral swelling [Not Recovered/Not Resolved]
  - Petechiae [Not Recovered/Not Resolved]
  - Pruritus [Not Recovered/Not Resolved]
  - Pain [Not Recovered/Not Resolved]

NARRATIVE: CASE EVENT DATE: 201903
